FAERS Safety Report 7945592-0 (Version None)
Quarter: 2011Q4

REPORT INFORMATION
  Report Type: 
  Country: None (occurrence: None)
  Receive Date: 20111129
  Receipt Date: 20111117
  Transmission Date: 20120403
  Serious: Yes (Other)
  Sender: FDA-Public Use
  Company Number: JP-B.I. PHARMACEUTICALS,INC./RIDGEFIELD-2011-BP-26880YA

PATIENT
  Sex: Male

DRUGS (3)
  1. TAMSULOSIN HCL [Suspect]
     Route: 048
  2. TAMSULOSIN HCL [Suspect]
     Route: 048
  3. UBRETID (DISTIGMINE BROMIDE) [Concomitant]

REACTIONS (1)
  - URINARY RETENTION [None]
